FAERS Safety Report 14610824 (Version 1)
Quarter: 2018Q1

REPORT INFORMATION
  Report Type: Spontaneous
  Country: US (occurrence: US)
  Receive Date: 20180308
  Receipt Date: 20180308
  Transmission Date: 20180509
  Serious: No
  Sender: FDA-Public Use
  Company Number: US-JNJFOC-20180219006

PATIENT
  Age: 48 Year
  Sex: Female
  Weight: 53.07 kg

DRUGS (6)
  1. NEXIUM [Concomitant]
     Active Substance: ESOMEPRAZOLE MAGNESIUM
     Indication: GASTRIC DISORDER
     Route: 065
  2. MOTRIN [Suspect]
     Active Substance: IBUPROFEN
     Route: 065
  3. METHOTREXATE. [Concomitant]
     Active Substance: METHOTREXATE
     Indication: RHEUMATOID ARTHRITIS
     Route: 065
     Dates: end: 201707
  4. METHOTREXATE. [Concomitant]
     Active Substance: METHOTREXATE
     Indication: RHEUMATOID ARTHRITIS
     Dosage: EVERY SATURDAY
     Route: 065
     Dates: start: 201709
  5. XELJANZ [Concomitant]
     Active Substance: TOFACITINIB CITRATE
     Indication: RHEUMATOID ARTHRITIS
     Dosage: AT EVENING WITH DINNER
     Route: 065
     Dates: start: 201707
  6. MOTRIN [Suspect]
     Active Substance: IBUPROFEN
     Indication: ARTHRALGIA
     Dosage: 3 IN THE MORNING; 2 IN THE AFTERNOON SOMETIMES AND 3 AT BEDTIME.
     Route: 065

REACTIONS (5)
  - Gastritis [Unknown]
  - Overdose [Unknown]
  - Gastric disorder [Unknown]
  - Incorrect dose administered [Unknown]
  - Dyspepsia [Unknown]
